FAERS Safety Report 8086074-8 (Version None)
Quarter: 2012Q1

REPORT INFORMATION
  Report Type: 
  Country: None (occurrence: None)
  Receive Date: 20120128
  Receipt Date: 20110610
  Transmission Date: 20120608
  Serious: Yes (Hospitalization, Other)
  Sender: FDA-Public Use
  Company Number: US-ABBOTT-11P-163-0731721-00

PATIENT
  Sex: Female

DRUGS (7)
  1. TOPIRAMATE [Concomitant]
     Indication: CONVULSION
     Route: 048
  2. LORAZEPAM [Concomitant]
     Indication: PRODUCT USED FOR UNKNOWN INDICATION
     Route: 048
  3. PHENERGAN [Concomitant]
     Indication: PRODUCT USED FOR UNKNOWN INDICATION
     Route: 048
  4. TRAMADOL HCL [Concomitant]
     Indication: PAIN
     Route: 048
  5. PEPCID [Concomitant]
     Indication: ABDOMINAL PAIN UPPER
     Route: 048
  6. HUMIRA [Suspect]
     Indication: RHEUMATOID ARTHRITIS
     Route: 058
     Dates: start: 20080101
  7. BUTALBITAL-ASA-CAFFEINE [Concomitant]
     Indication: PAIN
     Route: 048

REACTIONS (2)
  - HEADACHE [None]
  - SUBDURAL HAEMATOMA [None]
